FAERS Safety Report 10203612 (Version 3)
Quarter: 2015Q1

REPORT INFORMATION
  Report Type: Spontaneous
  Country: GB (occurrence: GB)
  Receive Date: 20140529
  Receipt Date: 20150211
  Transmission Date: 20150720
  Serious: Yes (Hospitalization)
  Sender: FDA-Public Use
  Company Number: GB-RANBAXY-2014RR-81576

PATIENT

DRUGS (2)
  1. LORAZEPAM. [Concomitant]
     Active Substance: LORAZEPAM
     Indication: ANXIETY
     Dosage: ONGOING
     Route: 048
     Dates: start: 201301
  2. SERTRALINE [Suspect]
     Active Substance: SERTRALINE HYDROCHLORIDE
     Indication: DEPRESSION
     Dosage: 25MG TITRATED TO 100MG, STOPPED PRIOR TO ADMISSION
     Route: 048
     Dates: start: 20140324, end: 20140428

REACTIONS (4)
  - Mutism [Recovered/Resolved]
  - Blepharospasm [Recovered/Resolved]
  - Serotonin syndrome [Recovered/Resolved]
  - Muscle rigidity [Recovered/Resolved]

NARRATIVE: CASE EVENT DATE: 20140427
